FAERS Safety Report 7887792-4 (Version None)
Quarter: 2011Q4

REPORT INFORMATION
  Report Type: 
  Country: None (occurrence: None)
  Receive Date: 20111103
  Receipt Date: 20111024
  Transmission Date: 20120403
  Serious: Yes (Other)
  Sender: FDA-Public Use
  Company Number: US-JNJFOC-20110813299

PATIENT
  Sex: Female
  Weight: 86.18 kg

DRUGS (15)
  1. REMICADE [Suspect]
     Indication: CROHN'S DISEASE
     Route: 042
  2. MICARDIS [Concomitant]
     Route: 065
  3. ESTROGENIC SUBSTANCE [Concomitant]
     Route: 065
  4. PHENERGAN HCL [Concomitant]
     Route: 065
  5. LEVAQUIN [Concomitant]
     Route: 065
  6. CANASA [Concomitant]
     Route: 065
  7. WELCHOL [Concomitant]
     Route: 065
  8. LOMOTIL [Concomitant]
     Route: 065
  9. IBUPROFEN (ADVIL) [Concomitant]
     Route: 065
  10. COUMADIN [Concomitant]
     Route: 065
  11. ENTOCORT EC [Concomitant]
     Route: 065
  12. REMICADE [Suspect]
     Route: 042
     Dates: start: 20110922
  13. PRILOSEC [Concomitant]
     Route: 065
  14. ASACOL [Concomitant]
     Route: 065
  15. REMICADE [Suspect]
     Route: 042
     Dates: start: 20060601

REACTIONS (13)
  - BACK PAIN [None]
  - GENERAL PHYSICAL HEALTH DETERIORATION [None]
  - PSORIASIS [None]
  - NAUSEA [None]
  - PRODUCTIVE COUGH [None]
  - VOMITING [None]
  - DIARRHOEA [None]
  - THERAPEUTIC RESPONSE DECREASED [None]
  - MUSCLE SPASMS [None]
  - ERYTHEMA [None]
  - VENOUS INJURY [None]
  - FLUSHING [None]
  - OSTEOPENIA [None]
